FAERS Safety Report 9688470 (Version 1)
Quarter: 2013Q4

REPORT INFORMATION
  Report Type: Spontaneous
  Country: ZA (occurrence: ZA)
  Receive Date: 20131114
  Receipt Date: 20131114
  Transmission Date: 20140711
  Serious: Yes (Death, Hospitalization)
  Sender: FDA-Public Use
  Company Number: ZA-JNJFOC-20131108182

PATIENT
  Age: 84 Year
  Sex: Male

DRUGS (5)
  1. XARELTO 10 [Suspect]
     Indication: TRANSIENT ISCHAEMIC ATTACK
     Route: 048
  2. XARELTO 10 [Suspect]
     Indication: TRANSIENT ISCHAEMIC ATTACK
     Route: 048
     Dates: start: 201310
  3. XARELTO 10 [Suspect]
     Indication: THROMBOSIS PROPHYLAXIS
     Route: 048
  4. XARELTO 10 [Suspect]
     Indication: THROMBOSIS PROPHYLAXIS
     Route: 048
     Dates: start: 201310
  5. ENOXAPARIN [Concomitant]
     Indication: PROPHYLAXIS
     Route: 065

REACTIONS (7)
  - Pulmonary embolism [Fatal]
  - Fall [Unknown]
  - Femur fracture [Unknown]
  - Gastrointestinal haemorrhage [Unknown]
  - Gastric ulcer [Unknown]
  - Lung infection [Unknown]
  - Haemoglobin decreased [Unknown]
